FAERS Safety Report 20291645 (Version 1)
Quarter: 2022Q1

REPORT INFORMATION
  Report Type: Spontaneous
  Country: US (occurrence: None)
  Receive Date: 20220104
  Receipt Date: 20220104
  Transmission Date: 20220423
  Serious: Yes (Hospitalization)
  Sender: FDA-Public Use
  Company Number: None

PATIENT
  Age: 51 Year
  Sex: Male
  Weight: 93.6 kg

DRUGS (17)
  1. SOTROVIMAB [Suspect]
     Active Substance: SOTROVIMAB
     Indication: COVID-19
     Dosage: FREQUENCY : ONCE;?
     Route: 042
     Dates: end: 20211228
  2. DEXAMETHASONE [Concomitant]
     Active Substance: DEXAMETHASONE
     Dates: start: 20211229
  3. REMDESIVIR [Concomitant]
     Active Substance: REMDESIVIR
  4. TACROLIMUS [Concomitant]
     Active Substance: TACROLIMUS
     Dates: start: 20200417
  5. TRAZODONE [Concomitant]
     Active Substance: TRAZODONE HYDROCHLORIDE
  6. Piperacillin-Tazobactam iv piggyback 3.375 g in Dextrose [Concomitant]
     Dates: start: 20211229, end: 20220101
  7. BENZOCAINE-MENTHOL [Concomitant]
  8. SULFAMETHOXAZOLE\TRIMETHOPRIM [Concomitant]
     Active Substance: SULFAMETHOXAZOLE\TRIMETHOPRIM
     Dates: start: 20201228
  9. ALLOPURINOL [Concomitant]
     Active Substance: ALLOPURINOL
     Dates: start: 20200403
  10. ATORVASTATIN [Concomitant]
     Active Substance: ATORVASTATIN
     Dates: start: 20210304
  11. HEPARIN [Concomitant]
     Active Substance: HEPARIN SODIUM
     Dates: start: 20211229
  12. AZITHROMYCIN [Concomitant]
     Active Substance: AZITHROMYCIN
     Dates: start: 20211229, end: 20211231
  13. VANCOMYCIN [Concomitant]
     Active Substance: VANCOMYCIN
     Dates: start: 20211229
  14. PREDNISONE [Concomitant]
     Active Substance: PREDNISONE
     Dates: start: 20200513
  15. AMLODIPINE [Concomitant]
     Active Substance: AMLODIPINE BESYLATE
     Dates: start: 20210604
  16. BARICITINIB [Concomitant]
     Active Substance: BARICITINIB
  17. MYCOPHENOLATE MOFETIL [Concomitant]
     Active Substance: MYCOPHENOLATE MOFETIL
     Dates: start: 20201228

REACTIONS (4)
  - Dyspnoea [None]
  - Sepsis [None]
  - Pneumonia bacterial [None]
  - Lung opacity [None]

NARRATIVE: CASE EVENT DATE: 20211229
